FAERS Safety Report 21998585 (Version 2)
Quarter: 2023Q2

REPORT INFORMATION
  Report Type: Other
  Country: IN (occurrence: None)
  Receive Date: 20230216
  Receipt Date: 20230411
  Transmission Date: 20230722
  Serious: Yes (Other)
  Sender: FDA-Public Use
  Company Number: IN-ROCHE-3285538

PATIENT
  Age: 46 Year
  Sex: Female

DRUGS (1)
  1. PHESGO [Suspect]
     Active Substance: HYALURONIDASE-ZZXF\PERTUZUMAB\TRASTUZUMAB
     Indication: Breast cancer
     Route: 058
     Dates: start: 20220418

REACTIONS (4)
  - Immunodeficiency [Unknown]
  - Pharyngitis [Unknown]
  - Gastrointestinal infection [Unknown]
  - Off label use [Unknown]
